FAERS Safety Report 18853565 (Version 1)
Quarter: 2021Q1

REPORT INFORMATION
  Report Type: Spontaneous
  Country: FR (occurrence: FR)
  Receive Date: 20210205
  Receipt Date: 20210205
  Transmission Date: 20210420
  Serious: Yes (Other)
  Sender: FDA-Public Use
  Company Number: FR-MYLANLABS-2021M1007386

PATIENT
  Age: 57 Year
  Sex: Female
  Weight: 71 kg

DRUGS (1)
  1. HULIO [Suspect]
     Active Substance: ADALIMUMAB-FKJP
     Indication: SPONDYLITIS
     Dosage: 40 MILLIGRAM, QW
     Route: 058
     Dates: start: 202008

REACTIONS (3)
  - Skin necrosis [Recovering/Resolving]
  - Panniculitis [Recovering/Resolving]
  - Injection site reaction [Recovering/Resolving]

NARRATIVE: CASE EVENT DATE: 202008
